FAERS Safety Report 22923221 (Version 4)
Quarter: 2024Q3

REPORT INFORMATION
  Report Type: Spontaneous
  Country: CA (occurrence: CA)
  Receive Date: 20230908
  Receipt Date: 20240717
  Transmission Date: 20241016
  Serious: Yes (Congenital Anomaly, Other)
  Sender: BOEHRINGER INGELHEIM
  Company Number: CA-BoehringerIngelheim-2023-BI-259622

PATIENT
  Sex: Female

DRUGS (13)
  1. SPIRIVA [Suspect]
     Active Substance: TIOTROPIUM BROMIDE MONOHYDRATE
     Indication: Foetal exposure during pregnancy
     Route: 064
  2. SPIRIVA [Suspect]
     Active Substance: TIOTROPIUM BROMIDE MONOHYDRATE
     Indication: Asthma
  3. PREDNISONE [Suspect]
     Active Substance: PREDNISONE
     Indication: Asthma
     Route: 064
  4. PREDNISONE [Suspect]
     Active Substance: PREDNISONE
     Indication: Foetal exposure during pregnancy
  5. MIRTAZAPINE [Suspect]
     Active Substance: MIRTAZAPINE
     Indication: Foetal exposure during pregnancy
     Route: 064
  6. OMALIZUMAB [Suspect]
     Active Substance: OMALIZUMAB
     Indication: Asthma
     Route: 064
  7. OMALIZUMAB [Suspect]
     Active Substance: OMALIZUMAB
     Indication: Foetal exposure during pregnancy
  8. VILANTEROL [Suspect]
     Active Substance: VILANTEROL
     Indication: Asthma
     Route: 064
  9. VILANTEROL [Suspect]
     Active Substance: VILANTEROL
     Indication: Foetal exposure during pregnancy
  10. FLUTICASONE FUROATE [Suspect]
     Active Substance: FLUTICASONE FUROATE
     Indication: Asthma
     Route: 064
  11. FLUTICASONE FUROATE [Suspect]
     Active Substance: FLUTICASONE FUROATE
     Indication: Foetal exposure during pregnancy
  12. DUPILUMAB [Suspect]
     Active Substance: DUPILUMAB
     Indication: Asthma
     Route: 064
  13. DUPILUMAB [Suspect]
     Active Substance: DUPILUMAB
     Indication: Foetal exposure during pregnancy

REACTIONS (10)
  - Pharyngeal disorder [Unknown]
  - Foetal exposure during pregnancy [Unknown]
  - Cleft palate [Unknown]
  - Secondary hypogonadism [Unknown]
  - Hypopituitarism foetal [Unknown]
  - Hypothalamo-pituitary disorder [Unknown]
  - Premature baby [Unknown]
  - Laryngomalacia [Unknown]
  - Pituitary stalk interruption syndrome [Unknown]
  - Congenital hypogonadotropic hypogonadism [Unknown]
